FAERS Safety Report 8445249-6 (Version None)
Quarter: 2012Q2

REPORT INFORMATION
  Report Type: 
  Country: None (occurrence: None)
  Receive Date: 20120611
  Receipt Date: 20120601
  Transmission Date: 20120825
  Serious: Yes (Other)
  Sender: FDA-Public Use
  Company Number: 2012SP029726

PATIENT
  Age: 82 Year
  Sex: Male

DRUGS (11)
  1. RAMIPRIL [Concomitant]
  2. ASPIRIN [Concomitant]
  3. DEXAMETHASONE [Suspect]
     Indication: CHRONIC LYMPHOCYTIC LEUKAEMIA
     Dosage: 20 MG
  4. ALLOPURINOL [Concomitant]
  5. OMEPRAZOLE [Concomitant]
  6. CIPROFLOXACIN [Concomitant]
  7. SIMVASTATIN [Concomitant]
  8. BENDAMUSTINE HYDROCHLORIDE [Suspect]
     Indication: CHRONIC LYMPHOCYTIC LEUKAEMIA
     Dosage: 70 MG/M2
  9. ACYCLOVIR [Concomitant]
  10. ENOXAPARIN SODIUM [Concomitant]
  11. FLUCONAZOLE [Concomitant]

REACTIONS (4)
  - FLUSHING [None]
  - MALAISE [None]
  - BODY TEMPERATURE DECREASED [None]
  - CHILLS [None]
